FAERS Safety Report 9016974 (Version 1)
Quarter: 2013Q1

REPORT INFORMATION
  Report Type: Spontaneous
  Country: US (occurrence: US)
  Receive Date: 20130117
  Receipt Date: 20130117
  Transmission Date: 20140127
  Serious: Yes (Hospitalization, Other)
  Sender: FDA-Public Use
  Company Number: US-009507513-0909USA03350

PATIENT
  Age: 38 Year
  Sex: Male
  Weight: 86.18 kg

DRUGS (2)
  1. MONTELUKAST SODIUM [Suspect]
     Indication: SUICIDAL IDEATION
     Dosage: 10 MG, HS
     Route: 048
     Dates: start: 20030101, end: 20090223
  2. MONTELUKAST SODIUM [Suspect]
     Indication: POST-TRAUMATIC STRESS DISORDER

REACTIONS (1)
  - Suicide attempt [Unknown]
